FAERS Safety Report 21711371 (Version 1)
Quarter: 2022Q4

REPORT INFORMATION
  Report Type: Other
  Country: None (occurrence: AU)
  Receive Date: 20221212
  Receipt Date: 20221212
  Transmission Date: 20230113
  Serious: Yes (Hospitalization)
  Sender: FDA-Public Use
  Company Number: AU-Nuvo Pharmaceuticals Inc-2135757

PATIENT
  Age: 29 Year
  Sex: Male

DRUGS (7)
  1. DIAZEPAM [Suspect]
     Active Substance: DIAZEPAM
     Indication: Product used for unknown indication
     Route: 048
  2. QUETIAPINE [Suspect]
     Active Substance: QUETIAPINE
     Route: 048
  3. ESCITALOPRAM [Suspect]
     Active Substance: ESCITALOPRAM OXALATE
     Route: 048
  4. ZOPICLONE [Suspect]
     Active Substance: ZOPICLONE
     Route: 048
  5. LORAZEPAM [Suspect]
     Active Substance: LORAZEPAM
     Route: 048
  6. MELATONIN [Suspect]
     Active Substance: MELATONIN
     Route: 048
  7. SODIUM NITRATE [Concomitant]
     Active Substance: SODIUM NITRATE
     Route: 048

REACTIONS (1)
  - PCO2 increased [Recovered/Resolved]
